FAERS Safety Report 21033571 (Version 1)
Quarter: 2022Q3

REPORT INFORMATION
  Report Type: Spontaneous
  Country: DE (occurrence: DE)
  Receive Date: 20220701
  Receipt Date: 20220701
  Transmission Date: 20221027
  Serious: Yes (Death, Other)
  Sender: FDA-Public Use
  Company Number: DE-DCGMA-21194125

PATIENT
  Age: 33 Year
  Sex: Female
  Weight: 40 kg

DRUGS (2)
  1. METAMIZOLE [Suspect]
     Active Substance: METAMIZOLE
     Indication: Pain
     Route: 048
  2. LAMOTRIGINE [Suspect]
     Active Substance: LAMOTRIGINE
     Indication: Epilepsy
     Route: 048

REACTIONS (2)
  - Agranulocytosis [Fatal]
  - Pneumonia legionella [Fatal]

NARRATIVE: CASE EVENT DATE: 20210910
